FAERS Safety Report 6055747-0 (Version None)
Quarter: 2009Q1

REPORT INFORMATION
  Report Type: 
  Country: None (occurrence: None)
  Receive Date: 20090128
  Receipt Date: 20090119
  Transmission Date: 20090719
  Serious: Yes (Hospitalization, Other)
  Sender: FDA-Public Use
  Company Number: JP-SANOFI-SYNTHELABO-A01200900760

PATIENT
  Sex: Male
  Weight: 41 kg

DRUGS (13)
  1. POLYGAM S/D [Concomitant]
     Dosage: UNK
     Route: 030
     Dates: start: 20090110
  2. MEROPEN [Concomitant]
     Dosage: UNK
     Route: 042
     Dates: start: 20090110
  3. GASTER [Concomitant]
     Indication: GASTRITIS PROPHYLAXIS
     Route: 048
     Dates: start: 20090105, end: 20090111
  4. LOPEMIN [Concomitant]
     Indication: DIARRHOEA
     Dosage: UNK
     Route: 048
     Dates: start: 20081203, end: 20090111
  5. HALCION [Concomitant]
     Indication: INSOMNIA
     Route: 048
     Dates: end: 20090111
  6. FLUOROURACIL [Concomitant]
     Indication: COLON CANCER
     Dosage: 438MG/BODY (300MG/M2) IN BOLUS THEN 2920MG/BODY/D1-2 (2000MG/M2/D1-2)
     Route: 040
     Dates: start: 20090105, end: 20090105
  7. FLUOROURACIL [Concomitant]
     Route: 041
     Dates: start: 20090105, end: 20090105
  8. LEVOFOLINATE [Concomitant]
     Indication: COLON CANCER
     Route: 041
     Dates: start: 20090105, end: 20090105
  9. ISOVORIN [Concomitant]
     Indication: COLON CANCER
     Route: 041
     Dates: start: 20081119, end: 20081119
  10. ELPLAT [Suspect]
     Indication: COLON CANCER
     Route: 041
     Dates: start: 20090105, end: 20090105
  11. SAXIZON [Concomitant]
     Route: 042
     Dates: start: 20090111
  12. VOLTAREN [Concomitant]
     Indication: CHEST PAIN
     Dosage: UNK
     Route: 048
     Dates: end: 20090111
  13. CEDIRANIB [Suspect]
     Indication: COLON CANCER
     Dosage: UNK
     Route: 048
     Dates: start: 20081119, end: 20090110

REACTIONS (3)
  - DISSEMINATED INTRAVASCULAR COAGULATION [None]
  - PLATELET COUNT DECREASED [None]
  - PNEUMONIA ASPIRATION [None]
